FAERS Safety Report 25287955 (Version 1)
Quarter: 2025Q2

REPORT INFORMATION
  Report Type: Spontaneous
  Country: US (occurrence: US)
  Receive Date: 20250509
  Receipt Date: 20250509
  Transmission Date: 20250716
  Serious: No
  Sender: LEXICON PHARMACEUTICALS
  Company Number: US-LEX-000739

PATIENT
  Age: 87 Year
  Sex: Female

DRUGS (12)
  1. INPEFA [Suspect]
     Active Substance: SOTAGLIFLOZIN
     Indication: Product used for unknown indication
     Route: 048
     Dates: start: 20250403
  2. ALPRAZOLAM [Concomitant]
     Active Substance: ALPRAZOLAM
  3. VITAMIN D3 [Concomitant]
     Active Substance: CHOLECALCIFEROL
  4. SPIRONOLACTONE [Concomitant]
     Active Substance: SPIRONOLACTONE
  5. PRAVASTATIN [Concomitant]
     Active Substance: PRAVASTATIN
  6. VITAMINS [Concomitant]
     Active Substance: VITAMINS
  7. LUTEIN [Concomitant]
     Active Substance: LUTEIN
  8. LISINOPRIL [Concomitant]
     Active Substance: LISINOPRIL
  9. LEVOTHYROXINE [Concomitant]
     Active Substance: LEVOTHYROXINE
  10. LASIX [Concomitant]
     Active Substance: FUROSEMIDE
  11. CARVEDILOL [Concomitant]
     Active Substance: CARVEDILOL
  12. ELIQUIS [Concomitant]
     Active Substance: APIXABAN

REACTIONS (1)
  - Fatigue [Unknown]

NARRATIVE: CASE EVENT DATE: 20250401
